FAERS Safety Report 23251614 (Version 1)
Quarter: 2023Q4

REPORT INFORMATION
  Report Type: Spontaneous
  Country: CN (occurrence: CN)
  Receive Date: 20231201
  Receipt Date: 20231201
  Transmission Date: 20240110
  Serious: Yes (Other)
  Sender: FDA-Public Use
  Company Number: CN-SA-SAC20231130000124

PATIENT
  Age: 55 Year
  Sex: Female
  Weight: 55 kg

DRUGS (1)
  1. ZOLPIDEM TARTRATE [Suspect]
     Active Substance: ZOLPIDEM TARTRATE
     Dosage: 10 MG, QD
     Route: 048
     Dates: start: 20231106, end: 20231107

REACTIONS (3)
  - Loss of consciousness [Recovering/Resolving]
  - Hallucination [Recovering/Resolving]
  - Somnambulism [Recovering/Resolving]

NARRATIVE: CASE EVENT DATE: 20231107
